FAERS Safety Report 7787721-8 (Version None)
Quarter: 2011Q3

REPORT INFORMATION
  Report Type: 
  Country: None (occurrence: None)
  Receive Date: 20110929
  Receipt Date: 20110922
  Transmission Date: 20111222
  Serious: Yes (Hospitalization)
  Sender: FDA-Public Use
  Company Number: US-MERCK-1104USA02292

PATIENT
  Age: 55 Year
  Sex: Male

DRUGS (4)
  1. GLIMEPIRIDE [Suspect]
     Indication: DIABETES MELLITUS
     Route: 065
  2. METFORMIN HCL [Suspect]
     Indication: DIABETES MELLITUS
     Route: 065
  3. ACTOS [Suspect]
     Indication: DIABETES MELLITUS
     Route: 065
  4. JANUVIA [Suspect]
     Indication: DIABETES MELLITUS
     Route: 048

REACTIONS (8)
  - INJURY [None]
  - CHOLELITHIASIS [None]
  - BACK DISORDER [None]
  - ROAD TRAFFIC ACCIDENT [None]
  - WRONG TECHNIQUE IN DRUG USAGE PROCESS [None]
  - HYPOGLYCAEMIA [None]
  - PANCREATITIS [None]
  - ADVERSE EVENT [None]
